FAERS Safety Report 11909214 (Version 1)
Quarter: 2016Q1

REPORT INFORMATION
  Report Type: Spontaneous
  Country: CN (occurrence: CN)
  Receive Date: 20160112
  Receipt Date: 20160112
  Transmission Date: 20160526
  Serious: Yes (Hospitalization)
  Sender: FDA-Public Use
  Company Number: CN-ROCHE-1692458

PATIENT
  Age: 37 Year
  Sex: Female
  Weight: 45 kg

DRUGS (4)
  1. DOXYCYCLINE HYDROCHLORIDE [Suspect]
     Active Substance: DOXYCYCLINE HYDROCHLORIDE
     Indication: INFECTION
     Route: 041
     Dates: start: 20150715, end: 20150723
  2. NORETHISTERONE [Suspect]
     Active Substance: NORETHINDRONE
     Indication: UTERINE HAEMORRHAGE
     Route: 048
     Dates: start: 20150715, end: 20150727
  3. ROCEPHIN [Suspect]
     Active Substance: CEFTRIAXONE SODIUM
     Indication: INFECTION
     Route: 041
     Dates: start: 20150715, end: 20150723
  4. TINIDAZOLE. [Suspect]
     Active Substance: TINIDAZOLE
     Indication: INFECTION
     Route: 041
     Dates: start: 20150715, end: 20150723

REACTIONS (1)
  - Hepatic function abnormal [Not Recovered/Not Resolved]

NARRATIVE: CASE EVENT DATE: 20150723
